FAERS Safety Report 24629735 (Version 1)
Quarter: 2024Q4

REPORT INFORMATION
  Report Type: Spontaneous
  Country: US (occurrence: US)
  Receive Date: 20241118
  Receipt Date: 20241118
  Transmission Date: 20250115
  Serious: No
  Sender: RANBAXY
  Company Number: US-SUN PHARMACEUTICAL INDUSTRIES LTD-2024R1-453030

PATIENT
  Sex: Female

DRUGS (3)
  1. ABSORICA LD [Suspect]
     Active Substance: ISOTRETINOIN
     Indication: Acne
     Dosage: 2 PILLS ONCE A DAY
     Route: 065
  2. SYNTHROID [Concomitant]
     Active Substance: LEVOTHYROXINE SODIUM
     Indication: Product used for unknown indication
     Dosage: UNK
     Route: 065
  3. ALDACTONE [Concomitant]
     Active Substance: SPIRONOLACTONE
     Indication: Product used for unknown indication
     Dosage: UNK
     Route: 065

REACTIONS (3)
  - Poor quality product administered [Unknown]
  - Drug ineffective [Unknown]
  - Product leakage [Unknown]
